FAERS Safety Report 5594293-5 (Version None)
Quarter: 2008Q1

REPORT INFORMATION
  Report Type: 
  Country: None (occurrence: None)
  Receive Date: 20080117
  Receipt Date: 20071203
  Transmission Date: 20080703
  Serious: Yes (Hospitalization)
  Sender: FDA-Public Use
  Company Number: DE-BAYER-200711140BVD

PATIENT
  Age: 74 Year
  Sex: Female
  Weight: 57 kg

DRUGS (1)
  1. NEXAVAR [Suspect]
     Indication: HEPATIC NEOPLASM MALIGNANT
     Route: 048
     Dates: start: 20070814, end: 20071003

REACTIONS (1)
  - VASCULITIS NECROTISING [None]
